FAERS Safety Report 5269968-8 (Version None)
Quarter: 2007Q1

REPORT INFORMATION
  Report Type: 
  Country: None (occurrence: None)
  Receive Date: 20070314
  Receipt Date: 20070307
  Transmission Date: 20070707
  Serious: Yes (Death)
  Sender: FDA-Public Use
  Company Number: TPG2007A00185

PATIENT
  Age: 59 Year
  Sex: Male

DRUGS (8)
  1. ACTOS [Suspect]
     Indication: DIABETES MELLITUS
     Dosage: 45 MG (45 MG, 1 IN 1 D), PER ORAL
     Route: 048
     Dates: start: 20061001
  2. LANTUS [Concomitant]
  3. CRESTOR [Concomitant]
  4. PLAVIX [Concomitant]
  5. BISOPROLOL FUMARATE [Concomitant]
  6. NOVORAPID (INSULIN ASPART) [Concomitant]
  7. XATRAL (ALFUZOSIN HYDROCHLORIDE) [Concomitant]
  8. TRAMADOL HCL [Concomitant]

REACTIONS (3)
  - CARDIAC ARREST [None]
  - MYOCARDIAL INFARCTION [None]
  - SHOCK [None]
